FAERS Safety Report 17036897 (Version 4)
Quarter: 2021Q1

REPORT INFORMATION
  Report Type: Report from Study
  Country: DE (occurrence: DE)
  Receive Date: 20191115
  Receipt Date: 20210317
  Transmission Date: 20210419
  Serious: Yes (Hospitalization)
  Sender: FDA-Public Use
  Company Number: DE-ROCHE-2471687

PATIENT
  Age: 61 Year
  Sex: Male

DRUGS (10)
  1. VENETOCLAX. [Suspect]
     Active Substance: VENETOCLAX
     Indication: CHRONIC LYMPHOCYTIC LEUKAEMIA
     Dosage: ON 29/OCT/2019, HE RECEIVED LAST DOSE OF ORAL VENETOCLAX PRIOR TO THE ONSET OF ADVERSE EVENT
     Route: 048
     Dates: start: 20190925, end: 20191029
  2. ENOXAPARIN SODIUM. [Concomitant]
     Active Substance: ENOXAPARIN SODIUM
     Dates: start: 20191030, end: 20191103
  3. COTRIMAZOL [Concomitant]
     Active Substance: SULFAMETHOXAZOLE\TRIMETHOPRIM
     Dates: start: 20190611
  4. BENDAMUSTINE [Suspect]
     Active Substance: BENDAMUSTINE
     Indication: CHRONIC LYMPHOCYTIC LEUKAEMIA
     Dosage: ON 03/JUL/2019, HE RECEIVED LAST DOSE OF INTRAVENOUS BENDAMUSTIN PRIOR TO THE ONSET OF SERIOUS ADVER
     Route: 042
     Dates: start: 20190605, end: 20190703
  5. PANTOPRAZOLE [Concomitant]
     Active Substance: PANTOPRAZOLE
     Dates: start: 20190703
  6. OBINUTUZUMAB. [Suspect]
     Active Substance: OBINUTUZUMAB
     Indication: CHRONIC LYMPHOCYTIC LEUKAEMIA
     Dosage: ON 23/OCT/2019, HE RECEIVED LAST DOSE OF INTRAVENOUS OBINUTUZUMAB PRIOR TO THE ONSET OF SEVERE ADVER
     Route: 042
     Dates: start: 20190731, end: 20191023
  7. ACALABRUTINIB. [Suspect]
     Active Substance: ACALABRUTINIB
     Indication: CHRONIC LYMPHOCYTIC LEUKAEMIA
     Dosage: ON 29/OCT/2019, HE RECEIVED LAST DOSE OF ORAL ACALABRUTINIB PRIOR TO THE ONSET OF SERIOUS ADVERSE EV
     Route: 048
     Dates: start: 20190828, end: 20191029
  8. CLEXANE [Concomitant]
     Active Substance: ENOXAPARIN SODIUM
  9. ACICLOVIR [Concomitant]
     Active Substance: ACYCLOVIR
     Dates: start: 20190611
  10. LACTULOSE. [Concomitant]
     Active Substance: LACTULOSE

REACTIONS (1)
  - Sinusitis [Recovered/Resolved]

NARRATIVE: CASE EVENT DATE: 20191029
